FAERS Safety Report 9162712 (Version 3)
Quarter: 2013Q2

REPORT INFORMATION
  Report Type: Spontaneous
  Country: GR (occurrence: GR)
  Receive Date: 20130314
  Receipt Date: 20130419
  Transmission Date: 20140414
  Serious: Yes (Other)
  Sender: FDA-Public Use
  Company Number: GR-PFIZER INC-2013081116

PATIENT
  Age: 73 Year
  Sex: Male

DRUGS (3)
  1. REVATIO [Suspect]
     Indication: PULMONARY ARTERIAL HYPERTENSION
     Dosage: 20 MG, 3X/DAY
     Dates: start: 2009
  2. REVATIO [Suspect]
     Dosage: 40 MG, 3X/DAY
     Dates: start: 20110117
  3. BOSENTAN [Concomitant]
     Dosage: UNK

REACTIONS (3)
  - Diplopia [Recovered/Resolved]
  - Eyelid ptosis [Recovered/Resolved]
  - Strabismus [Recovered/Resolved]
